FAERS Safety Report 4735171-0 (Version None)
Quarter: 2005Q3

REPORT INFORMATION
  Report Type: 
  Country: None (occurrence: None)
  Receive Date: 20050804
  Receipt Date: 20050727
  Transmission Date: 20060218
  Serious: Yes (Other)
  Sender: FDA-Public Use
  Company Number: 2005107878

PATIENT
  Sex: Male
  Weight: 92.9874 kg

DRUGS (2)
  1. DILANTIN KAPSEAL [Suspect]
     Indication: CONVULSION
     Dosage: 300 MG (100 MG, 2 IN 1 D), ORAL
     Route: 048
     Dates: start: 19600101
  2. PHENOBARBITAL TAB [Concomitant]

REACTIONS (1)
  - CONVULSION [None]
